FAERS Safety Report 14694323 (Version 1)
Quarter: 2018Q1

REPORT INFORMATION
  Report Type: Spontaneous
  Country: US (occurrence: US)
  Receive Date: 20180327
  Receipt Date: 20180327
  Transmission Date: 20180509
  Serious: Yes (Hospitalization)
  Sender: FDA-Public Use
  Company Number: None

PATIENT
  Sex: Female

DRUGS (8)
  1. LEVOTHYROXIN [Concomitant]
     Active Substance: LEVOTHYROXINE
  2. OPSUMIT [Concomitant]
     Active Substance: MACITENTAN
  3. ESTRADIOL. [Concomitant]
     Active Substance: ESTRADIOL
  4. METOPROLOL TARTRATE. [Concomitant]
     Active Substance: METOPROLOL TARTRATE
  5. MELATONIN [Concomitant]
     Active Substance: MELATONIN
  6. SIMVASTATIN. [Concomitant]
     Active Substance: SIMVASTATIN
  7. ADCIRCA [Suspect]
     Active Substance: TADALAFIL
     Indication: PULMONARY ARTERIAL HYPERTENSION
     Route: 048
     Dates: start: 201802
  8. FUROSEMID [Concomitant]
     Active Substance: FUROSEMIDE

REACTIONS (1)
  - Hospitalisation [None]
